FAERS Safety Report 10386452 (Version 1)
Quarter: 2014Q3

REPORT INFORMATION
  Report Type: Spontaneous
  Country: JP (occurrence: JP)
  Receive Date: 20140815
  Receipt Date: 20140815
  Transmission Date: 20150326
  Serious: Yes (Other)
  Sender: FDA-Public Use
  Company Number: JP-PFIZER INC-2014224402

PATIENT
  Age: 81 Year
  Sex: Male

DRUGS (2)
  1. FARMORUBICIN [Suspect]
     Active Substance: EPIRUBICIN HYDROCHLORIDE
     Dosage: UNK
     Route: 013
     Dates: start: 20140801
  2. FARMORUBICIN [Suspect]
     Active Substance: EPIRUBICIN HYDROCHLORIDE
     Indication: HEPATIC CANCER
     Dosage: 50 MG, DAILY
     Route: 013
     Dates: start: 201403

REACTIONS (2)
  - Disseminated intravascular coagulation [Unknown]
  - Bacterial sepsis [Unknown]
